FAERS Safety Report 23463054 (Version 1)
Quarter: 2024Q1

REPORT INFORMATION
  Report Type: Spontaneous
  Country: FR (occurrence: FR)
  Receive Date: 20240131
  Receipt Date: 20240131
  Transmission Date: 20240410
  Serious: Yes (Hospitalization, Other)
  Sender: FDA-Public Use
  Company Number: None

PATIENT
  Age: 80 Year
  Sex: Male
  Weight: 90 kg

DRUGS (10)
  1. PEMBROLIZUMAB [Suspect]
     Active Substance: PEMBROLIZUMAB
     Indication: Bronchial carcinoma
     Dosage: 200 MILLIGRAM, EVERY 4 WEEKS
     Route: 042
     Dates: start: 20220921, end: 20231006
  2. PACLITAXEL [Suspect]
     Active Substance: PACLITAXEL
     Indication: Bronchial carcinoma
     Dosage: 165 MILLIGRAM
     Route: 042
     Dates: start: 20231025, end: 20231130
  3. CARBOPLATIN [Suspect]
     Active Substance: CARBOPLATIN
     Indication: Bronchial carcinoma
     Dosage: 580 MILLIGRAM, EVERY 4 WEEKS
     Route: 042
     Dates: start: 20231025, end: 20231124
  4. ATORVASTATIN [Concomitant]
     Active Substance: ATORVASTATIN
     Dosage: 10 MILLIGRAM, QD
     Route: 048
  5. INDACATEROL [Concomitant]
     Active Substance: INDACATEROL
     Dosage: 1 DOSAGE FORM, QD
  6. ASPIRIN [Concomitant]
     Active Substance: ASPIRIN
     Dosage: 1 DOSAGE FORM, QD
     Route: 048
  7. SILODOSIN [Concomitant]
     Active Substance: SILODOSIN
     Dosage: 6 MILLIGRAM, QD
     Route: 048
  8. SPIRIVA [Concomitant]
     Active Substance: TIOTROPIUM BROMIDE MONOHYDRATE
     Dosage: 1 DOSAGE FORM, QD
  9. AVODART [Concomitant]
     Active Substance: DUTASTERIDE
     Dosage: 1 DOSAGE FORM, QD
     Route: 048
  10. LATANOPROST [Concomitant]
     Active Substance: LATANOPROST
     Dosage: 1 GTT DROPS, QD
     Route: 047

REACTIONS (2)
  - Encephalitis [Recovering/Resolving]
  - Meningitis aseptic [Recovering/Resolving]

NARRATIVE: CASE EVENT DATE: 20231205
